FAERS Safety Report 26073715 (Version 1)
Quarter: 2025Q4

REPORT INFORMATION
  Report Type: Spontaneous
  Country: US (occurrence: US)
  Receive Date: 20251121
  Receipt Date: 20251121
  Transmission Date: 20260117
  Serious: Yes (Other)
  Sender: TEVA
  Company Number: US-TEVA-VS-3394128

PATIENT
  Age: 42 Year
  Sex: Female

DRUGS (1)
  1. EPINEPHRINE [Suspect]
     Active Substance: EPINEPHRINE
     Indication: Anaphylactic reaction
     Dosage: EPINEPHRINE INJECTION 0.3MG/0.3ML
     Route: 065
     Dates: start: 20251109

REACTIONS (4)
  - Device malfunction [Unknown]
  - Wrong technique in product usage process [Unknown]
  - Needle issue [Unknown]
  - Drug dose omission by device [Unknown]

NARRATIVE: CASE EVENT DATE: 20251109
